FAERS Safety Report 5714194-9 (Version None)
Quarter: 2008Q2

REPORT INFORMATION
  Report Type: 
  Country: None (occurrence: None)
  Receive Date: 20080423
  Receipt Date: 20071017
  Transmission Date: 20081010
  Serious: No
  Sender: FDA-Public Use
  Company Number: US-KINGPHARMUSA00001-K200701343

PATIENT

DRUGS (2)
  1. SKELAXIN [Suspect]
     Indication: BACK PAIN
     Dosage: 800 MG, TID
     Route: 048
  2. SKELAXIN [Suspect]
     Indication: ACCIDENT

REACTIONS (1)
  - DRUG SCREEN POSITIVE [None]
